FAERS Safety Report 8517304-3 (Version None)
Quarter: 2012Q3

REPORT INFORMATION
  Report Type: 
  Country: None (occurrence: None)
  Receive Date: 20120718
  Receipt Date: 20120713
  Transmission Date: 20120928
  Serious: No
  Sender: FDA-Public Use
  Company Number: US-B.I. PHARMACEUTICALS,INC./RIDGEFIELD-2012-BP-15670BP

PATIENT
  Sex: Male

DRUGS (2)
  1. ASPIRIN [Concomitant]
  2. PRADAXA [Suspect]
     Dates: end: 20120101

REACTIONS (3)
  - RASH [None]
  - CELLULITIS [None]
  - HAEMORRHAGE [None]
